FAERS Safety Report 23152898 (Version 1)
Quarter: 2023Q4

REPORT INFORMATION
  Report Type: Report from Study
  Country: US (occurrence: US)
  Receive Date: 20231107
  Receipt Date: 20231107
  Transmission Date: 20240110
  Serious: Yes (Hospitalization)
  Sender: FDA-Public Use
  Company Number: US-TEVA-2023-US-2942224

PATIENT

DRUGS (5)
  1. DEXAMETHASONE [Suspect]
     Active Substance: DEXAMETHASONE
     Indication: Primary amyloidosis
     Dosage: RECEIVED WITH INITIAL 2 INFUSIONS OF DARATUMUMAB 20MG
     Route: 065
  2. DARATUMUMAB [Suspect]
     Active Substance: DARATUMUMAB
     Indication: Primary amyloidosis
     Dosage: 16 MG/KG EVERY WEEK FOR 8 DOSES
     Route: 041
  3. DARATUMUMAB [Suspect]
     Active Substance: DARATUMUMAB
     Dosage: 16 MG/KG EVERY OTHER WEEK FOR 8 DOSES
     Route: 041
  4. DARATUMUMAB [Suspect]
     Active Substance: DARATUMUMAB
     Dosage: 16 MG/KG EVERY 4 WEEKS FOR 2 YEARS
     Route: 041
  5. BORTEZOMIB [Suspect]
     Active Substance: BORTEZOMIB
     Indication: Primary amyloidosis
     Dosage: 1.3 MG/M 2 ON DAYS 1, 8 AND 15 EVERY 4 WEEKS FOR UP TO 18 CYCLES
     Route: 058

REACTIONS (1)
  - Pneumothorax spontaneous [Unknown]
